FAERS Safety Report 11542481 (Version 1)
Quarter: 2015Q3

REPORT INFORMATION
  Report Type: Spontaneous
  Country: US (occurrence: US)
  Receive Date: 20150923
  Receipt Date: 20150923
  Transmission Date: 20151125
  Serious: No
  Sender: FDA-Public Use
  Company Number: US-SHIRE-US201511380

PATIENT
  Sex: Male

DRUGS (1)
  1. ELAPRASE [Suspect]
     Active Substance: IDURSULFASE
     Indication: MUCOPOLYSACCHARIDOSIS
     Dosage: 15 MG, 1X/WEEK
     Route: 041
     Dates: start: 20150429

REACTIONS (2)
  - Rhinovirus infection [Unknown]
  - Pyrexia [Unknown]

NARRATIVE: CASE EVENT DATE: 2015
